FAERS Safety Report 15243101 (Version 1)
Quarter: 2018Q3

REPORT INFORMATION
  Report Type: Other
  Country: ES (occurrence: ES)
  Receive Date: 20180806
  Receipt Date: 20180806
  Transmission Date: 20181010
  Serious: Yes (Hospitalization, Other)
  Sender: FDA-Public Use
  Company Number: ES-CELLTRION INC.-2018ES021610

PATIENT

DRUGS (3)
  1. INFLIXIMAB (UNKNOWN) [Suspect]
     Active Substance: INFLIXIMAB
     Dosage: UNK
     Route: 042
  2. INFLIXIMAB (UNKNOWN) [Suspect]
     Active Substance: INFLIXIMAB
     Dosage: 6 WEEKS, LYOPHILIZED POWDER
     Route: 042
  3. INFLIXIMAB (UNKNOWN) [Suspect]
     Active Substance: INFLIXIMAB
     Indication: COLITIS ULCERATIVE
     Dosage: 8 WEEKS, LYOPHILIZED POWDER
     Route: 042

REACTIONS (18)
  - Weight increased [Unknown]
  - Chest pain [Unknown]
  - Off label use [Unknown]
  - Renal colic [Unknown]
  - Mitral valve repair [Unknown]
  - Uterine prolapse [Unknown]
  - Anaemia [Recovered/Resolved]
  - Arthralgia [Unknown]
  - Colitis ulcerative [Recovered/Resolved]
  - Dyspepsia [Unknown]
  - Inappropriate schedule of drug administration [Unknown]
  - Infusion related reaction [Not Recovered/Not Resolved]
  - Psoriasis [Recovered/Resolved]
  - Eye disorder [Unknown]
  - Extrasystoles [Unknown]
  - Blood fibrinogen abnormal [Recovered/Resolved]
  - Fatigue [Unknown]
  - Paraesthesia [Not Recovered/Not Resolved]

NARRATIVE: CASE EVENT DATE: 2015
